FAERS Safety Report 6282326-2 (Version None)
Quarter: 2009Q3

REPORT INFORMATION
  Report Type: 
  Country: None (occurrence: None)
  Receive Date: 20090722
  Receipt Date: 20090722
  Transmission Date: 20100115
  Serious: Yes (Other)
  Sender: FDA-Public Use
  Company Number: None

PATIENT
  Sex: Male
  Weight: 64.8644 kg

DRUGS (1)
  1. MORPHINE [Suspect]
     Indication: PROCEDURAL PAIN
     Dosage: 2MG OT IV BOLUS
     Route: 040
     Dates: start: 20090721, end: 20090721

REACTIONS (4)
  - ERYTHEMA [None]
  - PRURITUS [None]
  - SWELLING [None]
  - VASODILATATION [None]
